FAERS Safety Report 10871506 (Version 1)
Quarter: 2015Q1

REPORT INFORMATION
  Report Type: Spontaneous
  Country: GB (occurrence: None)
  Receive Date: 20150223
  Receipt Date: 20150223
  Transmission Date: 20150721
  Serious: Yes (Other)
  Sender: FDA-Public Use
  Company Number: None

PATIENT
  Age: 37 Year
  Sex: Female
  Weight: 53 kg

DRUGS (1)
  1. RESTASIS [Suspect]
     Active Substance: CYCLOSPORINE
     Indication: DRY EYE
     Dosage: 1 DROP ONCE DAILY INTO THE EYE
     Route: 047
     Dates: start: 20140101, end: 20150101

REACTIONS (4)
  - Uveitis [None]
  - Immune system disorder [None]
  - Visual acuity reduced [None]
  - Disease recurrence [None]

NARRATIVE: CASE EVENT DATE: 20150101
